FAERS Safety Report 7724284-7 (Version None)
Quarter: 2011Q3

REPORT INFORMATION
  Report Type: 
  Country: None (occurrence: None)
  Receive Date: 20110901
  Receipt Date: 20110824
  Transmission Date: 20111222
  Serious: Yes (Death, Hospitalization)
  Sender: FDA-Public Use
  Company Number: GB-TEVA-298588ISR

PATIENT
  Age: 73 Year
  Sex: Female

DRUGS (2)
  1. SODIUM CHLORIDE [Suspect]
     Indication: DEHYDRATION
     Route: 042
  2. PRIMAXIN [Suspect]
     Indication: BACTERIAL INFECTION
     Dosage: 1000 MILLIGRAM;
     Route: 042

REACTIONS (4)
  - RENAL FAILURE ACUTE [None]
  - PNEUMONIA [None]
  - DEPRESSED LEVEL OF CONSCIOUSNESS [None]
  - RESPIRATORY FAILURE [None]
